FAERS Safety Report 10237018 (Version 1)
Quarter: 2014Q2

REPORT INFORMATION
  Report Type: Spontaneous
  Country: GB (occurrence: GB)
  Receive Date: 20140613
  Receipt Date: 20140613
  Transmission Date: 20141212
  Serious: Yes (Life-Threatening, Hospitalization)
  Sender: FDA-Public Use
  Company Number: GB-BANPHARM-20142779

PATIENT
  Age: 21 Month
  Sex: Female
  Weight: 11 kg

DRUGS (4)
  1. IBUPROFEN UNKNOWN PRODUCT [Suspect]
     Indication: PYREXIA
     Dosage: 3 DF, QD,
     Route: 048
  2. IBUPROFEN UNKNOWN PRODUCT [Suspect]
     Indication: DISCOMFORT
     Dosage: 3 DF, QD,
     Route: 048
  3. LACTULOSE [Concomitant]
  4. MOVICOL [Concomitant]

REACTIONS (1)
  - Necrotising fasciitis [Recovered/Resolved with Sequelae]
